FAERS Safety Report 17663919 (Version 1)
Quarter: 2020Q2

REPORT INFORMATION
  Report Type: Spontaneous
  Country: None (occurrence: IT)
  Receive Date: 20200414
  Receipt Date: 20200414
  Transmission Date: 20200713
  Serious: Yes (Other)
  Sender: FDA-Public Use
  Company Number: IT-MICRO LABS LIMITED-ML2020-01326

PATIENT

DRUGS (3)
  1. CEFTRIAXONE. [Suspect]
     Active Substance: CEFTRIAXONE
  2. AMOXICILLIN/CLAVULANIC ACID [Suspect]
     Active Substance: AMOXICILLIN\CLAVULANIC ACID
  3. TEICOPLANIN [Suspect]
     Active Substance: TEICOPLANIN

REACTIONS (1)
  - Drug reaction with eosinophilia and systemic symptoms [Unknown]
